FAERS Safety Report 24634141 (Version 1)
Quarter: 2024Q4

REPORT INFORMATION
  Report Type: Report from Study
  Country: US (occurrence: US)
  Receive Date: 20241119
  Receipt Date: 20241119
  Transmission Date: 20250114
  Serious: Yes (Congenital Anomaly, Other)
  Sender: ABBVIE
  Company Number: US-ABBVIE-6003770

PATIENT

DRUGS (8)
  1. NORVIR [Suspect]
     Active Substance: RITONAVIR
     Indication: Maternal exposure timing unspecified
     Route: 064
  2. NORVIR [Suspect]
     Active Substance: RITONAVIR
     Indication: Maternal exposure timing unspecified
     Route: 064
  3. INTELENCE [Suspect]
     Active Substance: ETRAVIRINE
     Indication: Maternal exposure timing unspecified
     Route: 064
  4. ISENTRESS [Suspect]
     Active Substance: RALTEGRAVIR POTASSIUM
     Indication: Maternal exposure timing unspecified
     Route: 064
  5. TRUVADA [Suspect]
     Active Substance: EMTRICITABINE\TENOFOVIR DISOPROXIL FUMARATE
     Indication: Maternal exposure timing unspecified
     Dosage: DOSE FORM: TAB/CAP
     Route: 064
  6. APTIVUS [Suspect]
     Active Substance: TIPRANAVIR
     Indication: Maternal exposure timing unspecified
     Route: 064
  7. ZIDOVUDINE [Suspect]
     Active Substance: ZIDOVUDINE
     Indication: Maternal exposure timing unspecified
     Route: 064
  8. PREZISTA [Suspect]
     Active Substance: DARUNAVIR ETHANOLATE
     Indication: Maternal exposure timing unspecified
     Route: 064

REACTIONS (16)
  - Congenital musculoskeletal disorder [Unknown]
  - Meconium stain [Unknown]
  - Sepsis [Unknown]
  - Blood iron decreased [Unknown]
  - Erythema [Unknown]
  - Cloacal exstrophy [Unknown]
  - Bladder agenesis [Unknown]
  - Umbilical cord abnormality [Unknown]
  - Tethered cord syndrome [Unknown]
  - Meningomyelocele [Unknown]
  - Exomphalos [Unknown]
  - Caudal regression syndrome [Unknown]
  - Genitalia external ambiguous [Unknown]
  - Foetal exposure during pregnancy [Unknown]
  - Lipodystrophy acquired [Unknown]
  - Gastrointestinal disorder congenital [Unknown]
